FAERS Safety Report 5115453-3 (Version None)
Quarter: 2006Q3

REPORT INFORMATION
  Report Type: 
  Country: None (occurrence: None)
  Receive Date: 20060922
  Receipt Date: 20060907
  Transmission Date: 20061208
  Serious: Yes (Disabling, Other)
  Sender: FDA-Public Use
  Company Number: 510002E06DEU

PATIENT
  Age: 19 Year
  Sex: Female

DRUGS (2)
  1. CLADRIBINE [Suspect]
     Indication: RELAPSING-REMITTING MULTIPLE SCLEROSIS
     Dosage: 1 DOSAGE FORMS (0.875 MG/KG, 5 IN 1 CYCLE) ORAL
     Route: 048
     Dates: start: 20060811, end: 20060816
  2. IMPLANON [Concomitant]

REACTIONS (11)
  - DIPLOPIA [None]
  - ERYTHEMA [None]
  - EYE IRRITATION [None]
  - HEADACHE [None]
  - HYPERSENSITIVITY [None]
  - MOUTH ULCERATION [None]
  - MUCOSAL ULCERATION [None]
  - SKIN REACTION [None]
  - SWELLING FACE [None]
  - TONGUE ULCERATION [None]
  - VERTIGO [None]
